FAERS Safety Report 4766492-3 (Version None)
Quarter: 2005Q3

REPORT INFORMATION
  Report Type: 
  Country: None (occurrence: None)
  Receive Date: 20050909
  Receipt Date: 20050829
  Transmission Date: 20060218
  Serious: Yes (Other)
  Sender: FDA-Public Use
  Company Number: 2005121471

PATIENT
  Sex: Female

DRUGS (2)
  1. GENOTROPIN [Suspect]
     Indication: HYPOPITUITARISM
     Dosage: SEE IMAGE
     Dates: start: 20050504
  2. NORTRILEN (NORTRIPTYLINE HYDROCHLORIDE) [Concomitant]

REACTIONS (4)
  - CARPAL TUNNEL SYNDROME [None]
  - DEPRESSION [None]
  - LOSS OF EMPLOYMENT [None]
  - SUICIDE ATTEMPT [None]
